FAERS Safety Report 7490514-2 (Version None)
Quarter: 2011Q2

REPORT INFORMATION
  Report Type: 
  Country: None (occurrence: None)
  Receive Date: 20110512
  Receipt Date: 20110504
  Transmission Date: 20111010
  Serious: Yes (Other)
  Sender: FDA-Public Use
  Company Number: 2011S1000152

PATIENT
  Age: 3 Month
  Sex: Male

DRUGS (2)
  1. PULMOZYME [Concomitant]
  2. INOMAX [Suspect]
     Indication: PULMONARY HYPERTENSION
     Dosage: 20 PPM;CONT;INH
     Route: 055
     Dates: start: 20110501

REACTIONS (4)
  - BRADYCARDIA [None]
  - DEVICE FAILURE [None]
  - OXYGEN SATURATION DECREASED [None]
  - WRONG TECHNIQUE IN DRUG USAGE PROCESS [None]
